FAERS Safety Report 16083112 (Version 1)
Quarter: 2019Q1

REPORT INFORMATION
  Report Type: Spontaneous
  Country: GB (occurrence: GB)
  Receive Date: 20190318
  Receipt Date: 20190318
  Transmission Date: 20190418
  Serious: Yes (Death, Other)
  Sender: FDA-Public Use
  Company Number: GB-ACCORD-112846

PATIENT
  Age: 83 Year
  Sex: Female
  Weight: 48.5 kg

DRUGS (9)
  1. COLECALCIFEROL [Concomitant]
     Active Substance: CHOLECALCIFEROL
  2. SENNA ALEXANDRINA [Concomitant]
     Active Substance: SENNA LEAF
  3. BISOPROLOL [Concomitant]
     Active Substance: BISOPROLOL
  4. BENDROFLUMETHIAZIDE [Concomitant]
     Active Substance: BENDROFLUMETHIAZIDE
     Dosage: STOPPED DURING ADMISSION DUE TO LOW BLOOD PRESSURE
  5. CODEINE [Concomitant]
     Active Substance: CODEINE
  6. GABAPENTIN. [Concomitant]
     Active Substance: GABAPENTIN
  7. FUROSEMIDE. [Suspect]
     Active Substance: FUROSEMIDE
     Indication: PULMONARY OEDEMA
     Dosage: VARIED FROM 40MG ONCE DAILY TO MAXIMUM 120MG DAILY
     Route: 048
     Dates: start: 20170830, end: 20180822
  8. BUMETANIDE. [Suspect]
     Active Substance: BUMETANIDE
     Indication: PULMONARY OEDEMA
     Dosage: BETWEEN 1MG AND 2MG DAILY
     Route: 048
     Dates: start: 20180816, end: 20180825
  9. FELODIPINE. [Concomitant]
     Active Substance: FELODIPINE

REACTIONS (2)
  - Pulmonary oedema [Fatal]
  - Hypernatraemia [Unknown]

NARRATIVE: CASE EVENT DATE: 20180809
